FAERS Safety Report 4657646-5 (Version None)
Quarter: 2005Q2

REPORT INFORMATION
  Report Type: 
  Country: None (occurrence: None)
  Receive Date: 20050510
  Receipt Date: 20050425
  Transmission Date: 20051028
  Serious: Yes (Life-Threatening, Hospitalization)
  Sender: FDA-Public Use
  Company Number: 200513490US

PATIENT
  Age: 58 Year
  Sex: Male

DRUGS (1)
  1. KETEK [Suspect]
     Indication: CHRONIC OBSTRUCTIVE AIRWAYS DISEASE EXACERBATED
     Dosage: DOSE: UNK

REACTIONS (13)
  - ABDOMINAL PAIN UPPER [None]
  - BLOOD BILIRUBIN INCREASED [None]
  - COAGULOPATHY [None]
  - DYSPNOEA EXACERBATED [None]
  - HEPATIC CONGESTION [None]
  - HEPATIC FAILURE [None]
  - HEPATIC HAEMORRHAGE [None]
  - HYPOTENSION [None]
  - ISCHAEMIC HEPATITIS [None]
  - JAUNDICE [None]
  - MULTI-ORGAN FAILURE [None]
  - RENAL FAILURE [None]
  - SEPTIC SHOCK [None]
